FAERS Safety Report 7037538-7 (Version None)
Quarter: 2010Q4

REPORT INFORMATION
  Report Type: 
  Country: None (occurrence: None)
  Receive Date: 20101011
  Receipt Date: 20101005
  Transmission Date: 20110411
  Serious: Yes (Death, Hospitalization)
  Sender: FDA-Public Use
  Company Number: FR-CELGENEUS-056-C5013-10071932

PATIENT
  Sex: Female
  Weight: 52 kg

DRUGS (12)
  1. CC-5013 [Suspect]
     Route: 048
     Dates: start: 20060113, end: 20090112
  2. CC-5013 [Suspect]
     Route: 048
     Dates: end: 20100712
  3. BETAMETHASONE [Concomitant]
     Route: 061
     Dates: start: 20081015
  4. PHLEBOGEL [Concomitant]
     Indication: PRODUCT USED FOR UNKNOWN INDICATION
     Route: 061
     Dates: start: 20071011
  5. XALATAN [Concomitant]
     Indication: PRODUCT USED FOR UNKNOWN INDICATION
     Route: 061
     Dates: start: 20070917
  6. RISEDRONATE SODIUM [Concomitant]
     Indication: OSTEOPOROSIS
     Route: 065
     Dates: start: 20070401
  7. CALCIUM CARBONATE W/COLECALCIFEROL [Concomitant]
     Indication: OSTEOPOROSIS
     Route: 048
     Dates: start: 20060420
  8. MORPHINE SULFATE [Concomitant]
     Route: 048
     Dates: start: 20060313
  9. RAMIPRIL [Concomitant]
     Route: 048
     Dates: start: 19910101
  10. DIOSMINE [Concomitant]
     Indication: VENOUS INSUFFICIENCY
     Route: 048
     Dates: start: 19890101
  11. PARACETAMOL [Concomitant]
     Route: 048
  12. LACRIFLUID [Concomitant]
     Indication: PRODUCT USED FOR UNKNOWN INDICATION
     Route: 061
     Dates: start: 20070217

REACTIONS (2)
  - ACUTE MYELOID LEUKAEMIA [None]
  - MYELODYSPLASTIC SYNDROME TRANSFORMATION [None]
